FAERS Safety Report 5033168-7 (Version None)
Quarter: 2006Q2

REPORT INFORMATION
  Report Type: 
  Country: None (occurrence: None)
  Receive Date: 20060620
  Receipt Date: 20060602
  Transmission Date: 20061013
  Serious: Yes (Other)
  Sender: FDA-Public Use
  Company Number: 2006RR-02499

PATIENT
  Age: 12 Year
  Sex: Male

DRUGS (2)
  1. DOXYCYCLINE [Suspect]
     Indication: LYME DISEASE
     Dosage: 200 MG, QD
  2. DOXYCYCLINE [Suspect]
     Indication: PROPHYLAXIS
     Dosage: 200 MG, QD

REACTIONS (3)
  - ONYCHOLYSIS [None]
  - PHOTOSENSITIVITY REACTION [None]
  - SKIN DISCOLOURATION [None]
